FAERS Safety Report 23131405 (Version 1)
Quarter: 2023Q4

REPORT INFORMATION
  Report Type: Spontaneous
  Country: GB (occurrence: GB)
  Receive Date: 20231031
  Receipt Date: 20231031
  Transmission Date: 20240110
  Serious: Yes (Other)
  Sender: FDA-Public Use
  Company Number: None

PATIENT
  Age: 25 Year
  Sex: Female

DRUGS (4)
  1. PREDNISOLONE [Suspect]
     Active Substance: PREDNISOLONE
     Indication: Psoriatic arthropathy
     Dosage: UNK (SHORT COURSE), THERAPY END DATE: NASK
     Route: 050
     Dates: start: 201903
  2. PREDNISOLONE [Suspect]
     Active Substance: PREDNISOLONE
     Indication: Peripheral spondyloarthritis
  3. SULFASALAZINE [Suspect]
     Active Substance: SULFASALAZINE
     Indication: Peripheral spondyloarthritis
     Dosage: UNK, THERAPY END DATE : NASK
     Route: 065
     Dates: start: 201809
  4. SULFASALAZINE [Suspect]
     Active Substance: SULFASALAZINE
     Indication: Psoriatic arthropathy

REACTIONS (3)
  - Multiple-drug resistance [Unknown]
  - Unevaluable event [Unknown]
  - Drug ineffective [Unknown]
